FAERS Safety Report 17271857 (Version 1)
Quarter: 2020Q1

REPORT INFORMATION
  Report Type: Spontaneous
  Country: US (occurrence: US)
  Receive Date: 20191223
  Receipt Date: 20191223
  Transmission Date: 20200409
  Serious: Yes (Hospitalization)
  Sender: FDA-Public Use
  Company Number: None

PATIENT
  Age: 67 Year
  Sex: Male

DRUGS (1)
  1. NIVOLUMAB (NIVOLUMAB 10MG/ML INJ, SOLN) [Suspect]
     Active Substance: NIVOLUMAB
     Indication: RENAL CELL CARCINOMA
     Dates: start: 20190801, end: 20190801

REACTIONS (4)
  - Pneumonitis [None]
  - Wheezing [None]
  - Cough [None]
  - Respiratory depression [None]

NARRATIVE: CASE EVENT DATE: 20191003
